FAERS Safety Report 5128749-6 (Version None)
Quarter: 2006Q4

REPORT INFORMATION
  Report Type: 
  Country: None (occurrence: None)
  Receive Date: 20061011
  Receipt Date: 20060928
  Transmission Date: 20070319
  Serious: Yes (Death)
  Sender: FDA-Public Use
  Company Number: 2006120406

PATIENT
  Sex: Female

DRUGS (2)
  1. CELEBREX [Suspect]
     Dates: start: 20010101, end: 20021226
  2. VIOXX [Suspect]
     Dates: start: 20000701, end: 20021226

REACTIONS (1)
  - PULMONARY EMBOLISM [None]
